FAERS Safety Report 20069739 (Version 1)
Quarter: 2021Q4

REPORT INFORMATION
  Report Type: Spontaneous
  Country: SG (occurrence: SG)
  Receive Date: 20211115
  Receipt Date: 20211115
  Transmission Date: 20220304
  Serious: Yes (Hospitalization, Other)
  Sender: FDA-Public Use
  Company Number: SG-MYLANLABS-2021M1083663

PATIENT
  Age: 20 Year
  Sex: Female

DRUGS (6)
  1. ADRENALIN [Suspect]
     Active Substance: EPINEPHRINE
     Indication: Anaphylactic reaction
     Dosage: TOTAL X3 (1ST DOSE)
     Route: 030
  2. ADRENALIN [Suspect]
     Active Substance: EPINEPHRINE
     Dosage: TOTAL X3 (2ND DOSE)
     Route: 030
  3. ADRENALIN [Suspect]
     Active Substance: EPINEPHRINE
     Dosage: TOTAL X3 (3RD DOSE)
     Route: 030
  4. COMIRNATY [Suspect]
     Active Substance: TOZINAMERAN
     Indication: COVID-19 immunisation
     Dosage: UNK, DOSE 1
     Dates: start: 20210625
  5. HYDROCORTISONE SODIUM SUCCINATE [Suspect]
     Active Substance: HYDROCORTISONE SODIUM SUCCINATE
     Indication: Product used for unknown indication
     Dosage: UNK
  6. CHLORPHENIRAMINE MALEATE [Suspect]
     Active Substance: CHLORPHENIRAMINE MALEATE
     Indication: Product used for unknown indication
     Dosage: UNK

REACTIONS (1)
  - Therapeutic product effect incomplete [Recovered/Resolved]

NARRATIVE: CASE EVENT DATE: 20210625
